FAERS Safety Report 13963998 (Version 1)
Quarter: 2017Q3

REPORT INFORMATION
  Report Type: Spontaneous
  Country: IT (occurrence: IT)
  Receive Date: 20170913
  Receipt Date: 20170913
  Transmission Date: 20171128
  Serious: Yes (Hospitalization)
  Sender: FDA-Public Use
  Company Number: PHHY2017IT133697

PATIENT
  Age: 18 Year
  Sex: Female

DRUGS (4)
  1. QUETIAPINE. [Suspect]
     Active Substance: QUETIAPINE
     Indication: BIPOLAR DISORDER
     Dosage: 300 MG, QD
     Route: 048
  2. TAVOR (LORAZEPAM) [Suspect]
     Active Substance: LORAZEPAM
     Dosage: 5 MG, UNK
     Route: 048
     Dates: start: 20170711, end: 20170711
  3. QUETIAPINE. [Suspect]
     Active Substance: QUETIAPINE
     Dosage: 800 MG, UNK
     Route: 048
     Dates: start: 20170711, end: 20170711
  4. TAVOR (LORAZEPAM) [Suspect]
     Active Substance: LORAZEPAM
     Indication: BIPOLAR DISORDER
     Dosage: 3 MG, QD
     Route: 048

REACTIONS (4)
  - Agitation [Recovering/Resolving]
  - Confusional state [Recovering/Resolving]
  - Overdose [Recovering/Resolving]
  - Crying [Recovering/Resolving]

NARRATIVE: CASE EVENT DATE: 20170711
